FAERS Safety Report 20640100 (Version 1)
Quarter: 2022Q1

REPORT INFORMATION
  Report Type: Spontaneous
  Country: CA (occurrence: CA)
  Receive Date: 20220326
  Receipt Date: 20220326
  Transmission Date: 20220423
  Serious: Yes (Death, Congenital Anomaly, Other)
  Sender: FDA-Public Use
  Company Number: CA-TEVA-2022-CA-2020173

PATIENT
  Age: 31 Month

DRUGS (28)
  1. CYCLOSPORINE [Suspect]
     Active Substance: CYCLOSPORINE
     Indication: Acute lymphocytic leukaemia
     Route: 065
  2. ETOPOSIDE [Suspect]
     Active Substance: ETOPOSIDE
     Indication: Acute lymphocytic leukaemia
     Route: 042
  3. LEUCOVORIN CALCIUM [Suspect]
     Active Substance: LEUCOVORIN CALCIUM
     Indication: Acute lymphocytic leukaemia
     Route: 065
  4. METHOTREXATE [Suspect]
     Active Substance: METHOTREXATE
     Indication: Acute lymphocytic leukaemia
     Route: 065
  5. MERCAPTOPURINE [Suspect]
     Active Substance: MERCAPTOPURINE
     Indication: Acute lymphocytic leukaemia
     Route: 048
  6. METHYLPREDNISOLONE [Suspect]
     Active Substance: METHYLPREDNISOLONE
     Indication: Acute lymphocytic leukaemia
     Route: 042
  7. LEUCOVORIN [Suspect]
     Active Substance: LEUCOVORIN
     Indication: Acute lymphocytic leukaemia
     Route: 042
  8. PREDNISONE [Suspect]
     Active Substance: PREDNISONE
     Indication: Acute lymphocytic leukaemia
     Route: 048
  9. VINCRISTINE SULFATE [Suspect]
     Active Substance: VINCRISTINE SULFATE
     Indication: Acute lymphocytic leukaemia
     Route: 042
  10. PEGASPARGASE [Suspect]
     Active Substance: PEGASPARGASE
     Indication: Acute lymphocytic leukaemia
     Route: 030
  11. MESNA [Suspect]
     Active Substance: MESNA
     Indication: Acute lymphocytic leukaemia
     Route: 065
  12. HYDROCORTISONE [Suspect]
     Active Substance: HYDROCORTISONE
     Indication: Acute lymphocytic leukaemia
     Route: 037
  13. FILGRASTIM [Suspect]
     Active Substance: FILGRASTIM
     Indication: Acute lymphocytic leukaemia
     Route: 065
  14. DEXAMETHASONE [Suspect]
     Active Substance: DEXAMETHASONE
     Indication: Acute lymphocytic leukaemia
     Route: 065
  15. DAUNORUBICIN [Suspect]
     Active Substance: DAUNORUBICIN
     Indication: Acute lymphocytic leukaemia
     Route: 042
  16. CYTARABINE [Suspect]
     Active Substance: CYTARABINE
     Indication: Acute lymphocytic leukaemia
     Route: 037
  17. CYCLOPHOSPHAMIDE [Suspect]
     Active Substance: CYCLOPHOSPHAMIDE
     Indication: Acute lymphocytic leukaemia
     Route: 042
  18. ASPARAGINASE [Suspect]
     Active Substance: ASPARAGINASE
     Indication: Product used for unknown indication
     Route: 065
  19. CEFAZOLIN SODIUM [Concomitant]
     Active Substance: CEFAZOLIN SODIUM
     Indication: Product used for unknown indication
     Route: 065
  20. CHOLECALCIFEROL [Concomitant]
     Active Substance: CHOLECALCIFEROL
     Indication: Product used for unknown indication
     Route: 065
  21. DEXRAZOXANE [Concomitant]
     Active Substance: DEXRAZOXANE
     Indication: Product used for unknown indication
     Route: 065
  22. FUROSEMIDE [Concomitant]
     Active Substance: FUROSEMIDE
     Indication: Product used for unknown indication
     Route: 065
  23. METOCLOPRAMIDE HYDROCHLORIDE [Concomitant]
     Active Substance: METOCLOPRAMIDE HYDROCHLORIDE
     Indication: Product used for unknown indication
     Route: 065
  24. MICAFUNGIN SODIUM [Concomitant]
     Active Substance: MICAFUNGIN SODIUM
     Indication: Product used for unknown indication
     Route: 065
  25. ONDANSETRON HYDROCHLORIDE [Concomitant]
     Active Substance: ONDANSETRON HYDROCHLORIDE
     Indication: Product used for unknown indication
     Route: 065
  26. POTASSIUM CHLORIDE [Concomitant]
     Active Substance: POTASSIUM CHLORIDE
     Indication: Product used for unknown indication
  27. RASBURICASE [Concomitant]
     Active Substance: RASBURICASE
     Indication: Product used for unknown indication
     Route: 065
  28. ALLOPURINOL [Concomitant]
     Active Substance: ALLOPURINOL
     Indication: Product used for unknown indication
     Route: 065

REACTIONS (14)
  - Bacterial infection [Fatal]
  - Cellulitis [Fatal]
  - Clostridium difficile colitis [Fatal]
  - Cystitis [Fatal]
  - Cytomegalovirus viraemia [Fatal]
  - Disseminated aspergillosis [Fatal]
  - Fungal infection [Fatal]
  - Lymphoid tissue hypoplasia [Fatal]
  - Lymphopenia [Fatal]
  - Mycobacterium chelonae infection [Fatal]
  - Pseudomonal sepsis [Fatal]
  - Secondary immunodeficiency [Fatal]
  - Thymus hypoplasia [Fatal]
  - Viral infection [Fatal]
